FAERS Safety Report 20127441 (Version 1)
Quarter: 2021Q4

REPORT INFORMATION
  Report Type: Spontaneous
  Country: NL (occurrence: NL)
  Receive Date: 20211129
  Receipt Date: 20211129
  Transmission Date: 20220303
  Serious: Yes (Hospitalization)
  Sender: FDA-Public Use
  Company Number: None

PATIENT
  Sex: Female
  Weight: 55 kg

DRUGS (5)
  1. CAPECITABINE [Suspect]
     Active Substance: CAPECITABINE
     Indication: Carcinoid tumour of the appendix
     Dosage: 1 DOSAGE FORM,  (2X PER DAY ORALLY)
     Route: 048
     Dates: start: 20210825, end: 20210902
  2. CAPECITABINE [Suspect]
     Active Substance: CAPECITABINE
     Indication: Signet-ring cell carcinoma
  3. CAPECITABINE [Concomitant]
     Active Substance: CAPECITABINE
     Dosage: 150 MILLIGRAM (FILM-COATED TABLET)
  4. COSMETICS [Concomitant]
     Active Substance: COSMETICS
     Dosage: CREME
  5. OXALIPLATIN [Concomitant]
     Active Substance: OXALIPLATIN
     Dosage: INFUUS, 1 MG/MG (MILLIGRAM PER MILLIGRAM)

REACTIONS (1)
  - Mucosal inflammation [Recovered/Resolved]
